FAERS Safety Report 14342811 (Version 1)
Quarter: 2018Q1

REPORT INFORMATION
  Report Type: Spontaneous
  Country: US (occurrence: US)
  Receive Date: 20180102
  Receipt Date: 20180102
  Transmission Date: 20180509
  Serious: No
  Sender: FDA-Public Use
  Company Number: US-LANNETT COMPANY, INC.-US-2017LAN000008

PATIENT

DRUGS (2)
  1. DOXYCYCLINE HYCLATE. [Suspect]
     Active Substance: DOXYCYCLINE HYCLATE
     Indication: PRODUCT USED FOR UNKNOWN INDICATION
     Dosage: 40 MG, QD
  2. DOXYCYCLINE HYCLATE. [Suspect]
     Active Substance: DOXYCYCLINE HYCLATE
     Dosage: 20 MG, QD
     Dates: end: 201612

REACTIONS (2)
  - Abdominal pain upper [Not Recovered/Not Resolved]
  - Diarrhoea [Not Recovered/Not Resolved]
